FAERS Safety Report 24991707 (Version 1)
Quarter: 2025Q1

REPORT INFORMATION
  Report Type: Report from Study
  Country: US (occurrence: US)
  Receive Date: 20250220
  Receipt Date: 20250220
  Transmission Date: 20250409
  Serious: No
  Sender: SUNOVION
  Company Number: US-SUMITOMO PHARMA SWITZERLAND GMBH-2025SPA001141

PATIENT

DRUGS (3)
  1. ORGOVYX [Suspect]
     Active Substance: RELUGOLIX
     Indication: Prostate cancer
     Route: 048
     Dates: start: 20220311, end: 20220311
  2. ORGOVYX [Suspect]
     Active Substance: RELUGOLIX
     Dosage: 120 MG, QD
     Route: 048
     Dates: start: 20220312
  3. CABOMETYX [Concomitant]
     Active Substance: CABOZANTINIB S-MALATE
     Route: 065

REACTIONS (3)
  - Pulmonary mass [Unknown]
  - Musculoskeletal disorder [Unknown]
  - Haemoglobin decreased [Unknown]
